FAERS Safety Report 9352242 (Version 1)
Quarter: 2013Q2

REPORT INFORMATION
  Report Type: Spontaneous
  Country: US (occurrence: US)
  Receive Date: 20130617
  Receipt Date: 20130617
  Transmission Date: 20140414
  Serious: Yes (Life-Threatening, Other)
  Sender: FDA-Public Use
  Company Number: CHPA2013US009756

PATIENT
  Sex: Female

DRUGS (1)
  1. THERAFLU NIGHTTIME SEVERE COLD WARMING SYRUP [Suspect]
     Dosage: UNK, UNK
     Route: 048

REACTIONS (2)
  - Feeling abnormal [Unknown]
  - Plague [Unknown]
